FAERS Safety Report 16389862 (Version 2)
Quarter: 2019Q3

REPORT INFORMATION
  Report Type: Report from Study
  Country: US (occurrence: US)
  Receive Date: 20190604
  Receipt Date: 20190726
  Transmission Date: 20191004
  Serious: No
  Sender: FDA-Public Use
  Company Number: US-SHIRE-US201911535

PATIENT
  Age: 40 Year
  Sex: Female

DRUGS (4)
  1. GATTEX [Suspect]
     Active Substance: TEDUGLUTIDE\WATER
     Indication: SHORT-BOWEL SYNDROME
     Dosage: 1.77 MILLIGRAM, 1X/DAY:QD
     Route: 058
     Dates: start: 20190401
  2. GATTEX [Suspect]
     Active Substance: TEDUGLUTIDE\WATER
     Dosage: UNK
     Route: 065
     Dates: start: 20190130
  3. GATTEX [Suspect]
     Active Substance: TEDUGLUTIDE\WATER
     Dosage: 3.54 MILLIGRAM, 1X/DAY:QD
     Route: 058
     Dates: start: 20190120
  4. GATTEX [Suspect]
     Active Substance: TEDUGLUTIDE\WATER
     Dosage: 3.54 MILLIGRAM, 1X/DAY:QD
     Route: 058
     Dates: start: 20190717

REACTIONS (4)
  - Diarrhoea [Recovering/Resolving]
  - Injection site bruising [Unknown]
  - Peripheral swelling [Unknown]
  - Flatulence [Unknown]

NARRATIVE: CASE EVENT DATE: 20190401
